FAERS Safety Report 25369553 (Version 1)
Quarter: 2025Q2

REPORT INFORMATION
  Report Type: Spontaneous
  Country: US (occurrence: None)
  Receive Date: 20250528
  Receipt Date: 20250528
  Transmission Date: 20250717
  Serious: Yes (Death)
  Sender: FDA-CTU
  Company Number: None

PATIENT
  Age: 66 Year
  Sex: Male
  Weight: 130.18 kg

DRUGS (19)
  1. DUPIXENT [Suspect]
     Active Substance: DUPILUMAB
     Indication: Dermatitis atopic
     Dates: start: 20240620, end: 20250525
  2. FOSRENOL 500MG CHEWABLE TABLETS [Concomitant]
  3. GABAPENTIN [Concomitant]
     Active Substance: GABAPENTIN
  4. JANUVIA 50MG TABLETS [Concomitant]
  5. PERMETHRIN 5% CREAM 60GM [Concomitant]
  6. RENVELA B00MG TABLETS [Concomitant]
  7. TRIAMCINOLONE 0.1% OINTMENT 30GM [Concomitant]
  8. TACROLIMUS [Concomitant]
     Active Substance: TACROLIMUS
  9. WARFARIN SODIUM [Concomitant]
     Active Substance: WARFARIN SODIUM
  10. ZOLPIDEM [Concomitant]
     Active Substance: ZOLPIDEM TARTRATE
  11. ATORVASTATIN [Concomitant]
     Active Substance: ATORVASTATIN
  12. CALCITRIOL [Concomitant]
     Active Substance: CALCITRIOL
  13. CARBIDOPA\LEVODOPA [Concomitant]
     Active Substance: CARBIDOPA\LEVODOPA
  14. CARVEDILOL [Concomitant]
     Active Substance: CARVEDILOL
  15. CETIRIZINE [Concomitant]
     Active Substance: CETIRIZINE HYDROCHLORIDE
  16. CINACALCET [Concomitant]
     Active Substance: CINACALCET
  17. DIALYVITE [Concomitant]
     Active Substance: ASCORBIC ACID\BIOTIN\CALCIUM PANTOTHENATE\COBALAMIN\FOLIC ACID\NIACINAMIDE\PYRIDOXINE HYDROCHLORIDE\
  18. DILTIAZEM [Concomitant]
     Active Substance: DILTIAZEM
  19. EZETIMIBE [Concomitant]
     Active Substance: EZETIMIBE

REACTIONS (3)
  - Cardiac failure [None]
  - Dialysis [None]
  - Adverse drug reaction [None]

NARRATIVE: CASE EVENT DATE: 20250525
